FAERS Safety Report 6490204-9 (Version None)
Quarter: 2009Q4

REPORT INFORMATION
  Report Type: 
  Country: None (occurrence: None)
  Receive Date: 20091124
  Receipt Date: 20091006
  Transmission Date: 20100525
  Serious: Yes (Other)
  Sender: FDA-Public Use
  Company Number: DSA_41798_2009

PATIENT
  Age: 20 Year
  Sex: Female

DRUGS (1)
  1. APLENZIN [Suspect]
     Indication: DRUG USE FOR UNKNOWN INDICATION
     Dosage: (522 MG, FREQUENCY )

REACTIONS (1)
  - CONVULSION [None]
